FAERS Safety Report 4401703-5 (Version None)
Quarter: 2004Q3

REPORT INFORMATION
  Report Type: 
  Country: None (occurrence: None)
  Receive Date: 20040714
  Receipt Date: 20040702
  Transmission Date: 20050211
  Serious: Yes (Death, Hospitalization)
  Sender: FDA-Public Use
  Company Number: HQWYE403422OCT03

PATIENT
  Age: 35 Year
  Sex: Female
  Weight: 104.8 kg

DRUGS (1)
  1. MYLOTARG [Suspect]
     Indication: ACUTE MYELOID LEUKAEMIA
     Dosage: INTRAVEOUS
     Route: 042
     Dates: start: 20030813

REACTIONS (5)
  - ACUTE MYELOID LEUKAEMIA [None]
  - CARDIAC FAILURE [None]
  - DISEASE PROGRESSION [None]
  - PULMONARY ALVEOLAR HAEMORRHAGE [None]
  - RESPIRATORY FAILURE [None]
